FAERS Safety Report 5612605-0 (Version None)
Quarter: 2008Q1

REPORT INFORMATION
  Report Type: 
  Country: None (occurrence: None)
  Receive Date: 20080204
  Receipt Date: 20080129
  Transmission Date: 20080703
  Serious: Yes (Hospitalization)
  Sender: FDA-Public Use
  Company Number: B0499349A

PATIENT
  Age: 62 Year
  Sex: Female
  Weight: 66 kg

DRUGS (15)
  1. FLUTIDE DISKUS [Suspect]
     Dosage: 100MG FOUR TIMES PER DAY
     Route: 055
     Dates: start: 19980101
  2. STMERIN D [Concomitant]
     Indication: ASTHMA
     Route: 055
     Dates: start: 19980101
  3. GASTER D [Concomitant]
     Indication: GASTRITIS
     Dosage: 40MG PER DAY
     Route: 048
     Dates: end: 20071210
  4. GASTROM [Concomitant]
     Indication: GASTRITIS
     Route: 048
  5. PL [Concomitant]
     Indication: ASTHMA
     Route: 048
  6. METHYCOOL [Concomitant]
     Dosage: 1500MG PER DAY
     Route: 048
  7. NATRIX [Concomitant]
     Indication: HYPERTENSION
     Dosage: 1MG PER DAY
     Route: 048
  8. MOBIC [Concomitant]
     Indication: OSTEOARTHRITIS
     Dosage: 10MG PER DAY
     Route: 048
     Dates: start: 20020101
  9. NORVASC [Concomitant]
     Indication: HYPERTENSION
     Dosage: 5MG PER DAY
     Route: 048
  10. ALOSENN [Concomitant]
     Indication: CONSTIPATION
     Route: 048
  11. UNICON [Concomitant]
     Indication: ASTHMA
     Dosage: 400MG PER DAY
     Route: 048
  12. MYSLEE [Concomitant]
     Indication: INSOMNIA
     Dosage: 10MG PER DAY
     Route: 048
  13. ROHYPNOL [Concomitant]
     Indication: INSOMNIA
     Dosage: 2MG PER DAY
     Route: 048
  14. PARIET [Concomitant]
     Dosage: 10MG PER DAY
     Route: 048
     Dates: start: 20071211
  15. CALONAL [Concomitant]
     Indication: OSTEOARTHRITIS
     Route: 048
     Dates: start: 20071210

REACTIONS (11)
  - ADRENAL INSUFFICIENCY [None]
  - ADRENAL NEOPLASM [None]
  - BLOOD CORTICOTROPHIN DECREASED [None]
  - CORTISOL FREE URINE DECREASED [None]
  - CUSHING'S SYNDROME [None]
  - HYDROXYCORTICOSTEROIDS URINE DECREASED [None]
  - HYPERTENSION [None]
  - HYPOKALAEMIA [None]
  - MALAISE [None]
  - VOMITING [None]
  - WEIGHT INCREASED [None]
